FAERS Safety Report 22541022 (Version 1)
Quarter: 2023Q2

REPORT INFORMATION
  Report Type: Spontaneous
  Country: US (occurrence: US)
  Receive Date: 20230609
  Receipt Date: 20230609
  Transmission Date: 20230721
  Serious: Yes (Life-Threatening, Other)
  Sender: FDA-Public Use
  Company Number: US-MYLANLABS-2021M1032233

PATIENT
  Age: 10 Year
  Sex: Male

DRUGS (10)
  1. SULFAMETHOXAZOLE\TRIMETHOPRIM [Suspect]
     Active Substance: SULFAMETHOXAZOLE\TRIMETHOPRIM
     Indication: Hyper IgE syndrome
     Dosage: UNK
     Route: 048
  2. SULFAMETHOXAZOLE\TRIMETHOPRIM [Suspect]
     Active Substance: SULFAMETHOXAZOLE\TRIMETHOPRIM
     Indication: Antibiotic therapy
  3. CYCLOSPORINE [Suspect]
     Active Substance: CYCLOSPORINE
     Indication: Hyper IgE syndrome
     Dosage: DOSE: 2-3 MG/KG
     Route: 065
  4. CYCLOSPORINE [Suspect]
     Active Substance: CYCLOSPORINE
     Indication: Eczema
  5. METHOTREXATE [Suspect]
     Active Substance: METHOTREXATE
     Indication: Eczema
     Dosage: UNK
     Route: 065
  6. HYDROCORTISONE [Suspect]
     Active Substance: HYDROCORTISONE
     Indication: Eczema
     Dosage: UNK
     Route: 061
  7. TRIAMCINOLONE [Suspect]
     Active Substance: TRIAMCINOLONE
     Indication: Eczema
     Dosage: UNK
     Route: 061
  8. IMMUNE GLOBULIN NOS [Suspect]
     Active Substance: IMMUNE GLOBULIN NOS
     Indication: Eczema
     Dosage: 1 GRAM PER KILOGRAM
     Route: 042
  9. OMALIZUMAB [Suspect]
     Active Substance: OMALIZUMAB
     Indication: Hyper IgE syndrome
     Dosage: 300 MILLIGRAM
     Route: 065
  10. OMALIZUMAB [Suspect]
     Active Substance: OMALIZUMAB
     Indication: Eczema

REACTIONS (2)
  - Anaphylactic reaction [Unknown]
  - Drug ineffective [Unknown]
